FAERS Safety Report 25348452 (Version 1)
Quarter: 2025Q2

REPORT INFORMATION
  Report Type: Spontaneous
  Country: US (occurrence: None)
  Receive Date: 20250522
  Receipt Date: 20250522
  Transmission Date: 20250717
  Serious: Yes (Other)
  Sender: FDA-CTU
  Company Number: None

PATIENT
  Age: 52 Year
  Sex: Female
  Weight: 72 kg

DRUGS (17)
  1. INTRAROSA [Suspect]
     Active Substance: PRASTERONE
     Indication: Dyspareunia
     Route: 067
     Dates: start: 20250521, end: 20250522
  2. HUMALOG [Concomitant]
     Active Substance: INSULIN LISPRO
  3. CGM [Concomitant]
  4. PRISTIQ EXTENDED-RELEASE [Concomitant]
     Active Substance: DESVENLAFAXINE SUCCINATE
  5. WELLBUTRIN [Concomitant]
     Active Substance: BUPROPION HYDROCHLORIDE
  6. ALTACE [Concomitant]
     Active Substance: RAMIPRIL
  7. ALLEGRA [Concomitant]
     Active Substance: FEXOFENADINE HYDROCHLORIDE
  8. PEPCID [Concomitant]
     Active Substance: FAMOTIDINE
  9. HYDROXYCHLOROQUINE [Concomitant]
     Active Substance: HYDROXYCHLOROQUINE
  10. SINGULAIR [Concomitant]
     Active Substance: MONTELUKAST SODIUM
  11. DEPAKOTE [Concomitant]
     Active Substance: DIVALPROEX SODIUM
  12. CELEBREX [Concomitant]
     Active Substance: CELECOXIB
  13. CROMOLYN SODIUM [Concomitant]
     Active Substance: CROMOLYN SODIUM
  14. Estrogen vaginal cream [Concomitant]
  15. MACROBID [Concomitant]
     Active Substance: NITROFURANTOIN\NITROFURANTOIN MONOHYDRATE
  16. VITAMINS [Concomitant]
     Active Substance: VITAMINS
  17. NAC [Concomitant]

REACTIONS (3)
  - Bladder spasm [None]
  - Vulvovaginal burning sensation [None]
  - Urinary tract infection [None]

NARRATIVE: CASE EVENT DATE: 20250521
